FAERS Safety Report 15010082 (Version 3)
Quarter: 2020Q3

REPORT INFORMATION
  Report Type: Spontaneous
  Country: US (occurrence: US)
  Receive Date: 20180614
  Receipt Date: 20200917
  Transmission Date: 20201102
  Serious: No
  Sender: FDA-Public Use
  Company Number: US-PFIZER INC-2018241896

PATIENT
  Age: 10 Year
  Sex: Male
  Weight: 32.65 kg

DRUGS (1)
  1. GENOTROPIN [Suspect]
     Active Substance: SOMATROPIN
     Indication: GROWTH FAILURE
     Dosage: 1.4 MG, ONCE A DAY
     Route: 058
     Dates: start: 20180104

REACTIONS (5)
  - Product dose omission issue [Unknown]
  - Needle issue [Unknown]
  - Condition aggravated [Not Recovered/Not Resolved]
  - Aggression [Not Recovered/Not Resolved]
  - Emotional disorder [Not Recovered/Not Resolved]
